FAERS Safety Report 6026126-7 (Version None)
Quarter: 2008Q4

REPORT INFORMATION
  Report Type: 
  Country: None (occurrence: None)
  Receive Date: 20081229
  Receipt Date: 20081215
  Transmission Date: 20090506
  Serious: No
  Sender: FDA-Public Use
  Company Number: 8040371

PATIENT
  Age: 32 Year
  Sex: Male
  Weight: 113.4 kg

DRUGS (5)
  1. KEPPRA [Suspect]
     Indication: CONVULSION
     Dosage: MG 2/D PO
     Route: 048
     Dates: start: 20040101, end: 20080801
  2. KEPPRA [Suspect]
     Indication: CONVULSION
     Dosage: 750 MG PO
     Route: 048
     Dates: start: 20080801, end: 20081215
  3. KEPPRA [Suspect]
     Indication: CONVULSION
     Dosage: 1000 MG PO
     Route: 048
     Dates: start: 20080801, end: 20081215
  4. DILANTIN [Concomitant]
  5. CRESTOR [Concomitant]

REACTIONS (2)
  - CONVULSION [None]
  - PRODUCT QUALITY ISSUE [None]
